FAERS Safety Report 5188914-9 (Version None)
Quarter: 2006Q4

REPORT INFORMATION
  Report Type: 
  Country: None (occurrence: None)
  Receive Date: 20061215
  Receipt Date: 20061206
  Transmission Date: 20070319
  Serious: No
  Sender: FDA-Public Use
  Company Number: MEDI-0004840

PATIENT
  Age: 50 Year
  Sex: Male

DRUGS (9)
  1. ETHYOL [Suspect]
     Indication: RADIOTHERAPY
     Dosage: 500 MG, 5 IN 5 D, SUBCUTANEOUS
     Route: 058
     Dates: start: 20060615, end: 20060621
  2. ETHYOL [Suspect]
     Indication: RADIOTHERAPY
     Dosage: 500 MG, 5 IN 5 D, SUBCUTANEOUS
     Route: 058
     Dates: start: 20060623, end: 20060705
  3. ETHYOL [Suspect]
     Indication: RADIOTHERAPY
     Dosage: 500 MG, 5 IN 5 D, SUBCUTANEOUS
     Route: 058
     Dates: start: 20060707, end: 20060707
  4. CARBOPLATIN [Concomitant]
  5. TAXOL [Concomitant]
  6. FLUOROURACIL [Concomitant]
  7. RADIATION THERAPY [Concomitant]
  8. ALLEGRA [Concomitant]
  9. SALAGEN [Concomitant]

REACTIONS (8)
  - DRY SKIN [None]
  - HYPOTENSION [None]
  - INJECTION SITE VESICLES [None]
  - PHARYNGOLARYNGEAL PAIN [None]
  - PRURITUS [None]
  - RADIATION INJURY [None]
  - RASH [None]
  - SKIN EXFOLIATION [None]
